FAERS Safety Report 15276767 (Version 1)
Quarter: 2018Q3

REPORT INFORMATION
  Report Type: Spontaneous
  Country: ZA (occurrence: ZA)
  Receive Date: 20180814
  Receipt Date: 20180814
  Transmission Date: 20181010
  Serious: Yes (Hospitalization)
  Sender: FDA-Public Use
  Company Number: ZA-PFIZER INC-2018310204

PATIENT
  Age: 50 Year
  Sex: Male

DRUGS (5)
  1. LYRICA [Suspect]
     Active Substance: PREGABALIN
     Dosage: 100 MG, UNK
  2. FLUZOL [Suspect]
     Active Substance: FLUCONAZOLE
     Dosage: 200 MG, UNK
  3. TRAMAL [Suspect]
     Active Substance: TRAMADOL
     Dosage: 50 MG, UNK
  4. ARCOXIA [Suspect]
     Active Substance: ETORICOXIB
     Dosage: 90 MG, UNK
  5. INDOBLOK [Suspect]
     Active Substance: PROPRANOLOL HYDROCHLORIDE
     Dosage: 40 MG, UNK

REACTIONS (1)
  - Road traffic accident [Unknown]

NARRATIVE: CASE EVENT DATE: 201805
